FAERS Safety Report 26179803 (Version 1)
Quarter: 2025Q4

REPORT INFORMATION
  Report Type: Spontaneous
  Country: US (occurrence: None)
  Receive Date: 20251218
  Receipt Date: 20251218
  Transmission Date: 20260118
  Serious: No
  Sender: FDA-CTU
  Company Number: None

PATIENT
  Sex: Female
  Weight: 78.3 kg

DRUGS (9)
  1. REPATHA [Suspect]
     Active Substance: EVOLOCUMAB
     Indication: Blood cholesterol increased
     Route: 058
     Dates: start: 20251024, end: 20251206
  2. Lisinopril 2.5 mg [Concomitant]
  3. retrovostatin 20mg plus [Concomitant]
  4. Zetia (generic though) 10mg [Concomitant]
  5. metformin off label for neuropathy 500mg [Concomitant]
  6. ALLEGRA [Concomitant]
     Active Substance: FEXOFENADINE HYDROCHLORIDE
  7. PEPCID [Concomitant]
     Active Substance: FAMOTIDINE
  8. Vit D (Rx^ed by neuroplogy) [Concomitant]
  9. DEVICE [Concomitant]
     Active Substance: DEVICE

REACTIONS (3)
  - Neuropathy peripheral [None]
  - Therapy cessation [None]
  - Demyelination [None]
